FAERS Safety Report 11434507 (Version 1)
Quarter: 2015Q3

REPORT INFORMATION
  Report Type: Spontaneous
  Country: US (occurrence: None)
  Receive Date: 20150828
  Receipt Date: 20150828
  Transmission Date: 20151125
  Serious: Yes (Hospitalization)
  Sender: FDA-Public Use
  Company Number: None

PATIENT
  Age: 54 Year
  Sex: Female
  Weight: 58.97 kg

DRUGS (4)
  1. LEVOTHYROXINE. [Suspect]
     Active Substance: LEVOTHYROXINE
     Indication: HYPOTHYROIDISM
     Route: 048
     Dates: start: 20150717, end: 20150801
  2. MULTIVITAMINS FOR WOMEN [Concomitant]
  3. CALCIUM 600 + D [Concomitant]
     Active Substance: CALCIUM\VITAMIN D
  4. LEVOTHYROXINE. [Suspect]
     Active Substance: LEVOTHYROXINE
     Indication: LABORATORY TEST ABNORMAL
     Route: 048
     Dates: start: 20150717, end: 20150801

REACTIONS (8)
  - Presyncope [None]
  - Feeling abnormal [None]
  - Dizziness [None]
  - Dry skin [None]
  - Tremor [None]
  - Nervousness [None]
  - Dry mouth [None]
  - Palpitations [None]

NARRATIVE: CASE EVENT DATE: 20150731
